FAERS Safety Report 8443019-6 (Version None)
Quarter: 2012Q2

REPORT INFORMATION
  Report Type: 
  Country: None (occurrence: None)
  Receive Date: 20120615
  Receipt Date: 20120601
  Transmission Date: 20120825
  Serious: Yes (Other)
  Sender: FDA-Public Use
  Company Number: DE-PFIZER INC-2012138430

PATIENT
  Age: 62 Year
  Sex: Female

DRUGS (11)
  1. PACLITAXEL [Suspect]
     Indication: METASTASES TO CENTRAL NERVOUS SYSTEM
  2. PACLITAXEL [Suspect]
     Indication: METASTASES TO LUNG
  3. PACLITAXEL [Suspect]
     Indication: METASTASES TO LYMPH NODES
  4. PACLITAXEL [Suspect]
     Indication: ACRAL LENTIGINOUS MELANOMA STAGE UNSPECIFIED
     Dosage: 200 MG/M2, EVERY 3 WEEKS
     Route: 042
     Dates: start: 20080101
  5. CISPLATIN [Suspect]
     Indication: METASTASES TO LYMPH NODES
  6. CISPLATIN [Suspect]
     Indication: ACRAL LENTIGINOUS MELANOMA STAGE UNSPECIFIED
     Dosage: 50 MG/M2, EVERY 3 WEEKS
     Route: 042
     Dates: start: 20080101
  7. CISPLATIN [Suspect]
     Indication: METASTASES TO CENTRAL NERVOUS SYSTEM
  8. CISPLATIN [Suspect]
     Indication: METASTASES TO LUNG
  9. CISPLATIN [Suspect]
     Indication: METASTASES TO SKIN
  10. SORAFENIB [Suspect]
     Indication: ACRAL LENTIGINOUS MELANOMA STAGE UNSPECIFIED
     Dosage: 800 MG, 1X/DAY
     Route: 048
     Dates: start: 20080101
  11. PACLITAXEL [Suspect]
     Indication: METASTASES TO SKIN

REACTIONS (2)
  - CYSTOID MACULAR OEDEMA [None]
  - MACULOPATHY [None]
